FAERS Safety Report 24592857 (Version 1)
Quarter: 2024Q4

REPORT INFORMATION
  Report Type: Spontaneous
  Country: US (occurrence: US)
  Receive Date: 20241108
  Receipt Date: 20241108
  Transmission Date: 20250114
  Serious: No
  Sender: LANTHEUS MEDICAL IMAGING
  Company Number: US-LANTHEUS-LMI-2024-00990

PATIENT
  Sex: Female

DRUGS (1)
  1. XENON [Suspect]
     Active Substance: XENON\XENON XE-133
     Indication: Product used for unknown indication
     Dosage: 20 MILLICURIE VIAL
     Route: 055
     Dates: start: 20240801, end: 20240801

REACTIONS (1)
  - Occupational exposure to product [Unknown]

NARRATIVE: CASE EVENT DATE: 20240801
